FAERS Safety Report 8835970 (Version 2)
Quarter: 2012Q4

REPORT INFORMATION
  Report Type: 
  Country: JP (occurrence: JP)
  Receive Date: 20121011
  Receipt Date: 20121101
  Transmission Date: 20130627
  Serious: Yes (Death)
  Sender: FDA-Public Use
  Company Number: JP-NOVOPROD-361423

PATIENT
  Age: 81 Year
  Sex: Male
  Weight: 55 kg

DRUGS (2)
  1. NOVOSEVEN HI [Suspect]
     Indication: FACTOR VII DEFICIENCY
     Dosage: 2 mg, qd
     Route: 042
     Dates: start: 20120904, end: 20120904
  2. NOVOSEVEN HI [Suspect]
     Dosage: 2 mg, qd
     Route: 042
     Dates: start: 20120929, end: 20120929

REACTIONS (1)
  - Haematemesis [Fatal]
